FAERS Safety Report 4560803-X (Version None)
Quarter: 2005Q1

REPORT INFORMATION
  Report Type: 
  Country: None (occurrence: None)
  Receive Date: 20050121
  Receipt Date: 20050105
  Transmission Date: 20050727
  Serious: Yes (Death, Hospitalization)
  Sender: FDA-Public Use
  Company Number: 9663

PATIENT
  Age: 69 Year
  Sex: Female

DRUGS (5)
  1. VINCRISTINE [Suspect]
     Dosage: 2 MG FREQ UNK, IV
     Route: 042
     Dates: start: 20030613, end: 20030614
  2. DOXORUBICIN HCL [Suspect]
     Dosage: 86 MG FREQ, IV
     Route: 042
     Dates: start: 20030613, end: 20030613
  3. METHYLPREDNISOLONE SODIUM SUCCINATE [Suspect]
     Dosage: 170 MG FREQ, IV
     Route: 042
     Dates: start: 20030613, end: 20030617
  4. RITUXIMAB [Suspect]
     Dosage: 645 MG FREQ., IV
     Route: 042
     Dates: start: 20030613, end: 20030613
  5. CYCLOPHOSPHAMIDE [Suspect]
     Dosage: 1290 MG FREQ, IV
     Route: 042
     Dates: start: 20030613, end: 20030612

REACTIONS (4)
  - ABDOMINAL PAIN [None]
  - AGRANULOCYTOSIS [None]
  - MULTI-ORGAN FAILURE [None]
  - SEPTIC SHOCK [None]
